FAERS Safety Report 21158605 (Version 4)
Quarter: 2022Q3

REPORT INFORMATION
  Report Type: Spontaneous
  Country: JP (occurrence: JP)
  Receive Date: 20220802
  Receipt Date: 20220920
  Transmission Date: 20221027
  Serious: Yes (Death, Other)
  Sender: FDA-Public Use
  Company Number: JP-CHUGAI-2022029471

PATIENT
  Age: 84 Year
  Sex: Male
  Weight: 51.6 kg

DRUGS (9)
  1. HEMLIBRA [Suspect]
     Active Substance: EMICIZUMAB-KXWH
     Indication: Acquired haemophilia
     Dosage: 300 MILLIGRAM, SINGLE
     Route: 058
     Dates: start: 20220712, end: 20220712
  2. HEMLIBRA [Suspect]
     Active Substance: EMICIZUMAB-KXWH
     Dosage: 150 MILLIGRAM, SINGLE
     Route: 058
     Dates: start: 20220713, end: 20220713
  3. HEMLIBRA [Suspect]
     Active Substance: EMICIZUMAB-KXWH
     Route: 058
     Dates: start: 20220719, end: 20220823
  4. PREDNISOLONE [Suspect]
     Active Substance: PREDNISOLONE
     Indication: Acquired haemophilia
     Dosage: 50 MILLIGRAM
     Route: 065
     Dates: start: 20220622
  5. CYCLOPHOSPHAMIDE [Suspect]
     Active Substance: CYCLOPHOSPHAMIDE
     Indication: Product used for unknown indication
     Dosage: 50 MILLIGRAM
     Route: 065
     Dates: start: 20220803
  6. NOVOSEVEN [Concomitant]
     Active Substance: COAGULATION FACTOR VIIA RECOMBINANT HUMAN
     Dosage: 5 MILLIGRAM,8 TIMES/DAY
     Route: 065
     Dates: start: 20220622, end: 20220624
  7. NOVOSEVEN [Concomitant]
     Active Substance: COAGULATION FACTOR VIIA RECOMBINANT HUMAN
     Dosage: 5 MILLIGRAM, QID
     Route: 065
     Dates: start: 20220624, end: 20220626
  8. NOVOSEVEN [Concomitant]
     Active Substance: COAGULATION FACTOR VIIA RECOMBINANT HUMAN
     Dosage: 5 MILLIGRAM,8 TIMES/DAY
     Route: 065
     Dates: start: 20220725, end: 20220726
  9. NOVOSEVEN [Concomitant]
     Active Substance: COAGULATION FACTOR VIIA RECOMBINANT HUMAN
     Dosage: 5 MILLIGRAM, QID
     Route: 065
     Dates: start: 20220727, end: 20220728

REACTIONS (4)
  - Pneumonia klebsiella [Fatal]
  - Haemobilia [Recovered/Resolved]
  - Haemoglobin decreased [Recovered/Resolved]
  - Anaemia [Recovered/Resolved]

NARRATIVE: CASE EVENT DATE: 20220723
